FAERS Safety Report 9628984 (Version 2)
Quarter: 2013Q4

REPORT INFORMATION
  Report Type: Spontaneous
  Country: BR (occurrence: BR)
  Receive Date: 20131017
  Receipt Date: 20131017
  Transmission Date: 20140711
  Serious: Yes (Other)
  Sender: FDA-Public Use
  Company Number: BR-ASTRAZENECA-2013SE21674

PATIENT
  Age: 40 Year
  Sex: Male
  Weight: 89 kg

DRUGS (4)
  1. ATACAND HCT [Suspect]
     Indication: HYPERTENSION
     Dosage: 16/12.5MG, DAILY
     Route: 048
     Dates: start: 2011
  2. ATENOLOL [Suspect]
     Indication: HYPERTENSION
     Dosage: UNKNOWN DOSE, DAILY
     Route: 048
     Dates: start: 2011, end: 2011
  3. ATENOLOL [Suspect]
     Indication: HYPERTENSION
     Dosage: UNKNOWN DOSE, DAILY
     Route: 048
     Dates: start: 2011, end: 201301
  4. NEBILET [Concomitant]
     Indication: HYPERTENSION
     Dosage: DAILY
     Dates: start: 2011

REACTIONS (7)
  - Blood pressure increased [Not Recovered/Not Resolved]
  - Dizziness [Not Recovered/Not Resolved]
  - Somnolence [Recovered/Resolved]
  - Headache [Not Recovered/Not Resolved]
  - Vision blurred [Not Recovered/Not Resolved]
  - Malaise [Not Recovered/Not Resolved]
  - Head discomfort [Not Recovered/Not Resolved]
